FAERS Safety Report 9951803 (Version 3)
Quarter: 2014Q1

REPORT INFORMATION
  Report Type: Report from Study
  Country: HK (occurrence: HK)
  Receive Date: 20140304
  Receipt Date: 20140313
  Transmission Date: 20141002
  Serious: Yes (Hospitalization)
  Sender: FDA-Public Use
  Company Number: HK-SA-200411662GDDC

PATIENT
  Age: 67 Year
  Sex: Female
  Weight: 58.2 kg

DRUGS (12)
  1. DOCETAXEL [Suspect]
     Indication: BREAST CANCER
     Route: 042
     Dates: start: 20040121, end: 20040121
  2. TRASTUZUMAB [Suspect]
     Indication: BREAST CANCER
     Route: 042
     Dates: start: 20040119, end: 20040119
  3. TRASTUZUMAB [Suspect]
     Indication: BREAST CANCER
     Route: 042
     Dates: start: 20040128, end: 20040128
  4. DOXORUBICIN [Suspect]
     Indication: BREAST CANCER
     Route: 042
     Dates: start: 20031229, end: 20031229
  5. CYCLOPHOSPHAMIDE [Suspect]
     Indication: BREAST CANCER
     Route: 042
     Dates: start: 20031229, end: 20031229
  6. THYMOL [Concomitant]
     Indication: MUCOSAL INFLAMMATION
     Route: 048
     Dates: start: 20040121, end: 20040127
  7. DEXAMETHASONE [Concomitant]
     Indication: PROPHYLAXIS
     Route: 048
     Dates: start: 20040119, end: 20040119
  8. DEXAMETHASONE [Concomitant]
     Indication: PROPHYLAXIS
     Route: 048
     Dates: start: 20040120, end: 20040120
  9. DEXAMETHASONE [Concomitant]
     Indication: PROPHYLAXIS
     Route: 048
     Dates: start: 20040121, end: 20040121
  10. DEXAMETHASONE [Concomitant]
     Indication: PROPHYLAXIS
     Route: 048
     Dates: start: 20040122, end: 20040122
  11. ZOFRAN [Concomitant]
     Route: 042
     Dates: start: 20040121, end: 20040121
  12. MAXOLON [Concomitant]
     Route: 048
     Dates: start: 20040121, end: 20040127

REACTIONS (6)
  - Cardiac failure congestive [Recovered/Resolved with Sequelae]
  - Cough [Recovered/Resolved with Sequelae]
  - Haemoptysis [Recovered/Resolved with Sequelae]
  - Dyspnoea [Recovered/Resolved with Sequelae]
  - Oedema peripheral [Recovered/Resolved with Sequelae]
  - Venous pressure jugular increased [Recovered/Resolved with Sequelae]
